FAERS Safety Report 6207246-0 (Version None)
Quarter: 2009Q2

REPORT INFORMATION
  Report Type: 
  Country: None (occurrence: None)
  Receive Date: 20090528
  Receipt Date: 20090217
  Transmission Date: 20091009
  Serious: Yes (Other)
  Sender: FDA-Public Use
  Company Number: MY-PFIZER INC-2009173335

PATIENT
  Age: 33 Year
  Sex: Female

DRUGS (11)
  1. SOLU-MEDROL [Suspect]
     Indication: ACUTE RESPIRATORY DISTRESS SYNDROME
     Dosage: UNIT DOSE: UNKNOWN; FREQUENCY: UNKNWN, DAILY;
     Route: 065
  2. SOLU-MEDROL [Suspect]
     Dosage: UNIT DOSE: UNKNOWN; FREQUENCY: UNKNWN, DAILY;
     Route: 065
  3. SOLU-MEDROL [Suspect]
     Dosage: UNIT DOSE: UNKNOWN; FREQUENCY: UNKNWN, DAILY;
     Route: 065
  4. HYDROCORTISONE [Suspect]
     Indication: ACUTE RESPIRATORY DISTRESS SYNDROME
     Dosage: UNK
     Route: 065
     Dates: start: 20070930
  5. AMIKACIN [Concomitant]
  6. MEROPENEM [Concomitant]
  7. VANCOMYCIN [Concomitant]
  8. ENOXAPARIN SODIUM [Concomitant]
  9. NADROPARIN [Concomitant]
  10. OMEPRAZOLE [Concomitant]
  11. FLUCONAZOLE [Concomitant]
     Indication: VULVOVAGINAL CANDIDIASIS

REACTIONS (6)
  - ANXIETY [None]
  - DELIRIUM [None]
  - DISORIENTATION [None]
  - HALLUCINATION [None]
  - SLEEP DISORDER [None]
  - SPEECH DISORDER [None]
